FAERS Safety Report 4418023-5 (Version None)
Quarter: 2004Q3

REPORT INFORMATION
  Report Type: 
  Country: None (occurrence: None)
  Receive Date: 20040803
  Receipt Date: 20040720
  Transmission Date: 20050211
  Serious: Yes (Death, Hospitalization)
  Sender: FDA-Public Use
  Company Number: RENA-11084

PATIENT
  Age: 69 Year
  Sex: Male

DRUGS (4)
  1. PHOSBLOCK - 250 MG TABLET [Suspect]
     Indication: HYPERPHOSPHATAEMIA
     Dosage: 2.25 G QD PO
     Route: 048
     Dates: start: 20040614
  2. PHOSBLOCK - 250 MG TABLET [Suspect]
     Indication: HYPERPHOSPHATAEMIA
     Dosage: 1.5 G QD PO
     Route: 048
     Dates: start: 20040426, end: 20040613
  3. NICORANDIL [Concomitant]
  4. PANTETHINE [Concomitant]

REACTIONS (9)
  - ARTERIAL OCCLUSIVE DISEASE [None]
  - DISSEMINATED INTRAVASCULAR COAGULATION [None]
  - GASTROINTESTINAL NECROSIS [None]
  - HAEMODIALYSIS [None]
  - HYPOTENSION [None]
  - MULTI-ORGAN FAILURE [None]
  - PERITONITIS [None]
  - SMALL INTESTINAL PERFORATION [None]
  - WHITE BLOOD CELL COUNT DECREASED [None]
